FAERS Safety Report 7768619-8 (Version None)
Quarter: 2011Q3

REPORT INFORMATION
  Report Type: 
  Country: None (occurrence: None)
  Receive Date: 20110922
  Receipt Date: 20110112
  Transmission Date: 20111222
  Serious: No
  Sender: FDA-Public Use
  Company Number: US-ASTRAZENECA-2011SE02029

PATIENT
  Age: 49 Year
  Sex: Male
  Weight: 111.1 kg

DRUGS (5)
  1. LIPITOR [Concomitant]
     Indication: BLOOD CHOLESTEROL INCREASED
  2. LEXAPRO [Concomitant]
  3. FORTAMET [Concomitant]
  4. SEROQUEL XR [Suspect]
     Indication: SLEEP DISORDER
     Dosage: IN EVENING
     Route: 048
     Dates: start: 20101201, end: 20110101
  5. AMARYL [Concomitant]

REACTIONS (6)
  - INSOMNIA [None]
  - TEARFULNESS [None]
  - FATIGUE [None]
  - DRUG DOSE OMISSION [None]
  - DEPRESSION [None]
  - SOMNOLENCE [None]
